FAERS Safety Report 9069844 (Version 4)
Quarter: 2013Q3

REPORT INFORMATION
  Report Type: Report from Study
  Country: FR (occurrence: FR)
  Receive Date: 20130215
  Receipt Date: 20130923
  Transmission Date: 20140515
  Serious: Yes (Hospitalization)
  Sender: FDA-Public Use
  Company Number: FR-GLAXOSMITHKLINE-B0867427A

PATIENT
  Age: 72 Year
  Sex: Female
  Weight: 57 kg

DRUGS (7)
  1. OFATUMUMAB [Suspect]
     Indication: CHRONIC LYMPHOCYTIC LEUKAEMIA
     Dosage: 1000MG CYCLIC
     Route: 042
     Dates: start: 201211
  2. BENDAMUSTINE [Suspect]
     Indication: CHRONIC LYMPHOCYTIC LEUKAEMIA
     Dosage: 113.4MG CYCLIC
     Route: 042
     Dates: start: 20121206
  3. VALACICLOVIR [Concomitant]
     Dates: start: 20130115
  4. PRIMPERAN [Concomitant]
     Dates: start: 20130115
  5. PAROXETINE [Concomitant]
     Dates: start: 20130115
  6. LEXOMIL [Concomitant]
     Dates: start: 20130115
  7. INEXIUM [Concomitant]
     Dates: start: 20130115

REACTIONS (3)
  - Asthenia [Recovered/Resolved]
  - Hypersomnia [Recovered/Resolved]
  - Cough [Recovered/Resolved]
